FAERS Safety Report 24324458 (Version 2)
Quarter: 2024Q4

REPORT INFORMATION
  Report Type: Report from Study
  Country: US (occurrence: US)
  Receive Date: 20240916
  Receipt Date: 20241025
  Transmission Date: 20250114
  Serious: Yes (Other)
  Sender: RECKITT BENCKISER
  Company Number: US-INDIVIOR US-INDV-156439-2024

PATIENT

DRUGS (2)
  1. SUBLOCADE [Suspect]
     Active Substance: BUPRENORPHINE
     Indication: Drug dependence
     Dosage: 100 MILLIGRAM, QMO
     Route: 058
     Dates: start: 202404
  2. SUBLOCADE [Suspect]
     Active Substance: BUPRENORPHINE

REACTIONS (2)
  - Hallucination [Not Recovered/Not Resolved]
  - Hypersomnia [Not Recovered/Not Resolved]

NARRATIVE: CASE EVENT DATE: 20240101
